FAERS Safety Report 17603701 (Version 1)
Quarter: 2020Q1

REPORT INFORMATION
  Report Type: Spontaneous
  Country: RU (occurrence: RU)
  Receive Date: 20200331
  Receipt Date: 20200331
  Transmission Date: 20200409
  Serious: Yes (Hospitalization, Other)
  Sender: FDA-Public Use
  Company Number: RU-ROCHE-2571246

PATIENT
  Sex: Female

DRUGS (13)
  1. AVASTIN [Suspect]
     Active Substance: BEVACIZUMAB
     Dosage: 4 COURSES OF BEVACIZUMMAB AND FOLFOX
     Route: 065
     Dates: start: 201908, end: 201909
  2. FOLFOX [Concomitant]
     Active Substance: FLUOROURACIL\LEUCOVORIN CALCIUM\OXALIPLATIN
     Indication: ADENOCARCINOMA OF COLON
     Dosage: 12 COURSES OF FOLFOX WITH AVASTIN
     Route: 065
     Dates: start: 20170726
  3. RADIOTHERAPY [Concomitant]
     Active Substance: RADIATION THERAPY
     Route: 065
     Dates: start: 20190703, end: 20190705
  4. AVASTIN [Suspect]
     Active Substance: BEVACIZUMAB
     Indication: ADENOCARCINOMA OF COLON
     Dosage: 12 COURSES OF FOLFOX AND BEVACIZZUMAB
     Route: 065
     Dates: start: 20170726
  5. AVASTIN [Suspect]
     Active Substance: BEVACIZUMAB
     Dosage: 12 COURSES OF BEVACIZUMAB AND FOLFIRI
     Route: 065
     Dates: start: 201901, end: 201906
  6. FOLFIRI [Concomitant]
     Active Substance: FLUOROURACIL\IRINOTECAN\LEUCOVORIN
     Indication: ADENOCARCINOMA OF COLON
     Dosage: 12 COURSES OF FOLFIRI WITH BEVACIZUMAB
     Route: 065
     Dates: start: 201901, end: 201906
  7. LONSURF [Concomitant]
     Active Substance: TIPIRACIL HYDROCHLORIDE\TRIFLURIDINE
     Indication: ADENOCARCINOMA OF COLON
  8. RADIOTHERAPY [Concomitant]
     Active Substance: RADIATION THERAPY
     Route: 065
     Dates: start: 20180112, end: 20181113
  9. FOLFOX [Concomitant]
     Active Substance: FLUOROURACIL\LEUCOVORIN CALCIUM\OXALIPLATIN
     Dosage: 4 COURSES OF FOLFOX AND AVASTIN
     Route: 065
     Dates: start: 201908, end: 201909
  10. FOLFIRI [Concomitant]
     Active Substance: FLUOROURACIL\IRINOTECAN\LEUCOVORIN
     Dosage: HAD 4 MORE CYCLES WITHOUT AVASTIN
     Route: 065
     Dates: start: 201903
  11. MITOMYCIN. [Concomitant]
     Active Substance: MITOMYCIN
     Indication: ADENOCARCINOMA OF COLON
     Dosage: 4 COURSES WITH 5FU
     Route: 065
     Dates: start: 201910
  12. FLUOROURACIL. [Concomitant]
     Active Substance: FLUOROURACIL
     Indication: ADENOCARCINOMA OF COLON
     Dosage: 4 COURSES WITH MITOMYCIN
     Route: 065
     Dates: start: 201910
  13. RADIOTHERAPY [Concomitant]
     Active Substance: RADIATION THERAPY
     Route: 065
     Dates: start: 20190703

REACTIONS (18)
  - Thyroidectomy [Unknown]
  - Hepatic lesion [Unknown]
  - Metastases to liver [Not Recovered/Not Resolved]
  - Lung neoplasm [Not Recovered/Not Resolved]
  - Hepatic cyst [Unknown]
  - Gastric ulcer [Unknown]
  - Renal cyst [Not Recovered/Not Resolved]
  - Metastases to lung [Not Recovered/Not Resolved]
  - Cholelithiasis [Unknown]
  - Therapy partial responder [Unknown]
  - Malformation venous [Unknown]
  - Umbilical hernia [Unknown]
  - Ileal stenosis [Unknown]
  - Pulmonary fibrosis [Unknown]
  - Lung cyst [Not Recovered/Not Resolved]
  - Haematotoxicity [Unknown]
  - Gallbladder oedema [Unknown]
  - Intra-abdominal fluid collection [Unknown]

NARRATIVE: CASE EVENT DATE: 20170726
